FAERS Safety Report 24585253 (Version 1)
Quarter: 2024Q4

REPORT INFORMATION
  Report Type: Spontaneous
  Country: CN (occurrence: CN)
  Receive Date: 20241106
  Receipt Date: 20241106
  Transmission Date: 20250115
  Serious: Yes (Other)
  Sender: ROCHE
  Company Number: CN-BoehringerIngelheim-2024-BI-060766

PATIENT
  Age: 52 Year
  Sex: Male
  Weight: 70.0 kg

DRUGS (1)
  1. ALTEPLASE [Suspect]
     Active Substance: ALTEPLASE
     Indication: Cerebral infarction
     Route: 042
     Dates: start: 20241024, end: 20241024

REACTIONS (5)
  - Arterial occlusive disease [Recovering/Resolving]
  - Cerebral infarction [Recovering/Resolving]
  - Oxygen saturation decreased [Recovering/Resolving]
  - Condition aggravated [Recovering/Resolving]
  - Blood pressure decreased [Recovering/Resolving]

NARRATIVE: CASE EVENT DATE: 20241024
